FAERS Safety Report 18324682 (Version 1)
Quarter: 2020Q3

REPORT INFORMATION
  Report Type: Spontaneous
  Country: PL (occurrence: PL)
  Receive Date: 20200929
  Receipt Date: 20200929
  Transmission Date: 20201103
  Serious: Yes (Hospitalization, Other)
  Sender: FDA-Public Use
  Company Number: PL-AMGEN-POLSP2020150228

PATIENT
  Age: 62 Year
  Sex: Female

DRUGS (4)
  1. ARANESP [Suspect]
     Active Substance: DARBEPOETIN ALFA
     Indication: ANAEMIA
     Dosage: 500 MICROGRAM
     Route: 065
     Dates: start: 20181126, end: 20190815
  2. IRON [Concomitant]
     Active Substance: IRON
     Dosage: 100 MILLIGRAM, QD
     Route: 048
     Dates: start: 20181126
  3. FOLIC ACID. [Concomitant]
     Active Substance: FOLIC ACID
  4. GEMCITABINE. [Concomitant]
     Active Substance: GEMCITABINE
     Dosage: UNK
     Dates: start: 20181126

REACTIONS (1)
  - Adenocarcinoma pancreas [Unknown]

NARRATIVE: CASE EVENT DATE: 20190604
